FAERS Safety Report 9806138 (Version 2)
Quarter: 2014Q1

REPORT INFORMATION
  Report Type: Report from Study
  Country: GB (occurrence: GB)
  Receive Date: 20140109
  Receipt Date: 20140228
  Transmission Date: 20141002
  Serious: Yes (Death)
  Sender: FDA-Public Use
  Company Number: GB-PFIZER INC-2014003919

PATIENT
  Age: 23 Year
  Sex: Female
  Weight: 50 kg

DRUGS (28)
  1. CRIZOTINIB [Suspect]
     Indication: ADULT T-CELL LYMPHOMA/LEUKAEMIA STAGE IV
     Dosage: 50 MG, 1X/DAY
     Route: 048
     Dates: start: 20131224, end: 20140101
  2. ZOPICLONE [Concomitant]
     Indication: ANXIOLYTIC THERAPY
     Dosage: 3.75 MG, UNK
     Route: 048
     Dates: start: 20131224
  3. OXYCODONE [Concomitant]
     Indication: PAIN
     Dosage: 7.5 MG, AS NEEDED
     Route: 058
     Dates: start: 20131127, end: 20131225
  4. VANCOMYCIN [Concomitant]
     Indication: SEPSIS
     Dosage: 1-2 X 1X/DAY
     Route: 042
     Dates: start: 20131224, end: 20131231
  5. MEROPENEM [Concomitant]
     Indication: SEPSIS
     Dosage: 1 G, UNK
     Route: 042
     Dates: start: 20131224, end: 20131231
  6. OMEPRAZOLE [Concomitant]
     Indication: PROPHYLAXIS
     Dosage: 40 MG, UNK
     Route: 042
     Dates: start: 20131224, end: 20131231
  7. ANIDULAFUNGIN [Concomitant]
     Indication: SEPSIS
     Dosage: 100 MG, 1X/DAY
     Route: 042
     Dates: start: 20131225, end: 20131231
  8. NYSTATIN [Concomitant]
     Indication: DENTAL DISORDER PROPHYLAXIS
     Dosage: 100000 DF, 4X/DAY
     Route: 048
     Dates: start: 20131224, end: 20131231
  9. ACICLOVIR [Concomitant]
     Indication: PROPHYLAXIS
     Dosage: 250 MG, 3X/DAY
     Route: 042
     Dates: start: 20131224, end: 20131231
  10. SPIRONOLACTONE [Concomitant]
     Indication: ABDOMINAL CAVITY DRAINAGE
     Dosage: 50 MG, 1X/DAY
     Route: 048
     Dates: start: 20131225, end: 20131231
  11. ONDANSETRON [Concomitant]
     Indication: NAUSEA
     Dosage: 8 MG, 3X/DAY
     Route: 042
     Dates: start: 20131224, end: 20131231
  12. ALLOPURINOL [Concomitant]
     Indication: PROPHYLAXIS
     Dosage: 300 MG, 1X/DAY
     Route: 048
     Dates: start: 20131225, end: 20131231
  13. SENNA [Concomitant]
     Indication: CONSTIPATION
     Dosage: 2 DF, 2X/DAY
     Route: 048
     Dates: start: 20131225, end: 20131231
  14. DOCUSATE SODIUM [Concomitant]
     Indication: CONSTIPATION
     Dosage: 200 MG, 2X/DAY
     Route: 048
     Dates: start: 20131226, end: 20131231
  15. PREGABALIN [Concomitant]
     Indication: NEURALGIA
     Dosage: 25 MG, 2X/DAY
     Route: 048
     Dates: start: 20131227, end: 20131231
  16. METHYLPREDNISOLONE [Concomitant]
     Indication: NEOPLASM PROGRESSION
     Dosage: 500 MG, UNK
     Route: 042
     Dates: start: 20131224, end: 20131224
  17. METHYLPREDNISOLONE [Concomitant]
     Dosage: 500 MG, UNK
     Route: 042
     Dates: start: 20131225, end: 20131225
  18. METHYLPREDNISOLONE [Concomitant]
     Dosage: 500 MG, UNK
     Route: 042
     Dates: start: 20131229, end: 20131229
  19. METHYLPREDNISOLONE [Concomitant]
     Dosage: 500 MG, UNK
     Route: 042
     Dates: start: 20131230, end: 20131230
  20. VITAMIN K [Concomitant]
     Indication: COAGULOPATHY
     Dosage: 10 MG, UNK
     Route: 042
     Dates: start: 20131224, end: 20131224
  21. VITAMIN K [Concomitant]
     Dosage: 10 MG, UNK
     Route: 042
     Dates: start: 20131229, end: 20131229
  22. AMIKACIN [Concomitant]
     Indication: SEPSIS
     Dosage: 400 MG, 3X/DAY
     Route: 042
     Dates: start: 20131228, end: 20131231
  23. HEPARIN [Concomitant]
     Indication: PROPHYLAXIS
     Dosage: 5000 DF, 2X/DAY
     Route: 058
     Dates: start: 20131228, end: 20131231
  24. CYCLIZINE [Concomitant]
     Indication: ANTIEMETIC SUPPORTIVE CARE
     Dosage: 50 MG, 3X/DAY
     Route: 042
     Dates: start: 20131231, end: 20131231
  25. PARACETAMOL [Concomitant]
     Indication: ANALGESIC THERAPY
     Dosage: 500 G, 3X/DAY
     Route: 042
     Dates: start: 20131231, end: 20131231
  26. MORPHINE SULFATE [Concomitant]
     Indication: PALLIATIVE CARE
     Dosage: 2-5 MG AS NEEDED
     Dates: start: 20131227, end: 20131231
  27. MIDAZOLAM [Concomitant]
     Indication: PALLIATIVE CARE
     Dosage: 1-2 MG, AS NEEDED
     Route: 042
     Dates: start: 20131228, end: 20131231
  28. TRANEXAMIC ACID [Concomitant]
     Indication: HAEMORRHAGE
     Dosage: 1 G, STAT
     Route: 042
     Dates: start: 20131229, end: 20131229

REACTIONS (2)
  - Disease progression [Fatal]
  - Adult T-cell lymphoma/leukaemia stage IV [Fatal]
